FAERS Safety Report 20918518 (Version 1)
Quarter: 2022Q2

REPORT INFORMATION
  Report Type: Spontaneous
  Country: US (occurrence: None)
  Receive Date: 20220603
  Receipt Date: 20220603
  Transmission Date: 20220721
  Serious: Yes (Life-Threatening, Other)
  Sender: FDA-Public Use
  Company Number: None

PATIENT
  Age: 40 Year
  Sex: Female
  Weight: 65.25 kg

DRUGS (6)
  1. TIXAGEVIMAB [Suspect]
     Active Substance: TIXAGEVIMAB
     Indication: Systemic lupus erythematosus
     Dosage: FREQUENCY : ONCE;?
     Route: 030
     Dates: start: 20220602, end: 20220602
  2. TIXAGEVIMAB [Suspect]
     Active Substance: TIXAGEVIMAB
     Indication: Rheumatoid arthritis
  3. TIXAGEVIMAB [Suspect]
     Active Substance: TIXAGEVIMAB
     Indication: COVID-19
  4. CILGAVIMAB [Suspect]
     Active Substance: CILGAVIMAB
     Indication: Systemic lupus erythematosus
     Dosage: FREQUENCY : ONCE;?
     Route: 030
     Dates: start: 20220602, end: 20220602
  5. CILGAVIMAB [Suspect]
     Active Substance: CILGAVIMAB
     Indication: Rheumatoid arthritis
  6. CILGAVIMAB [Suspect]
     Active Substance: CILGAVIMAB
     Indication: COVID-19

REACTIONS (7)
  - Hypoaesthesia oral [None]
  - Swollen tongue [None]
  - Tremor [None]
  - Chills [None]
  - Nausea [None]
  - Ear pain [None]
  - Pain [None]

NARRATIVE: CASE EVENT DATE: 20220602
